FAERS Safety Report 21845604 (Version 2)
Quarter: 2023Q1

REPORT INFORMATION
  Report Type: Report from Study
  Country: US (occurrence: US)
  Receive Date: 20230111
  Receipt Date: 20230221
  Transmission Date: 20230418
  Serious: Yes (Hospitalization, Other)
  Sender: FDA-Public Use
  Company Number: US-002147023-NVSC2022US282921

PATIENT
  Age: 46 Year
  Sex: Male
  Weight: 79.4 kg

DRUGS (22)
  1. ILARIS [Suspect]
     Active Substance: CANAKINUMAB
     Indication: Pancreatic carcinoma metastatic
     Dosage: 250 MG, QMO
     Route: 058
     Dates: start: 20220908
  2. ILARIS [Suspect]
     Active Substance: CANAKINUMAB
     Dosage: UNK (THE LAST DOSE PRIOR TO THE EVENT ONSET WAS ADMINISTERED)
     Route: 065
     Dates: start: 20221103
  3. ILARIS [Suspect]
     Active Substance: CANAKINUMAB
     Dosage: UNK
     Route: 065
     Dates: start: 20221201
  4. SPARTALIZUMAB [Suspect]
     Active Substance: SPARTALIZUMAB
     Indication: Pancreatic carcinoma metastatic
     Dosage: 400 MG, QMO
     Route: 042
     Dates: start: 20220908
  5. SPARTALIZUMAB [Suspect]
     Active Substance: SPARTALIZUMAB
     Dosage: UNK (THE LAST DOSE PRIOR TO THE EVENT ONSET WAS ADMINISTERED)
     Route: 065
  6. SPARTALIZUMAB [Suspect]
     Active Substance: SPARTALIZUMAB
     Dosage: UNK
     Route: 065
  7. GEMCITABINE [Suspect]
     Active Substance: GEMCITABINE
     Indication: Pancreatic carcinoma metastatic
     Dosage: 1528 MG/M2 THREE TIMES A MONTH
     Route: 042
     Dates: start: 20220908
  8. GEMCITABINE [Suspect]
     Active Substance: GEMCITABINE
     Dosage: 1910 MG
     Route: 065
     Dates: start: 20220916
  9. GEMCITABINE [Suspect]
     Active Substance: GEMCITABINE
     Dosage: UNK (LAST DOSE PRIOR TO THE EVENT ONSET WAS ADMINISTERED)
     Route: 065
     Dates: start: 20221117
  10. GEMCITABINE [Suspect]
     Active Substance: GEMCITABINE
     Dosage: UNK
     Route: 065
     Dates: start: 20221215
  11. PACLITAXEL [Suspect]
     Active Substance: PACLITAXEL
     Indication: Pancreatic carcinoma metastatic
     Dosage: 200 MG, THREE TIMES A MONTH, 125 MILLIGRAM/SQ. METER
     Route: 042
     Dates: start: 20220908
  12. PACLITAXEL [Suspect]
     Active Substance: PACLITAXEL
     Dosage: 238.75 MG (THREE TIMES PER MONTH)
     Route: 065
     Dates: start: 20220916
  13. PACLITAXEL [Suspect]
     Active Substance: PACLITAXEL
     Dosage: UNK (LAST DOSE PRIOR TO THE EVENT ONSET WAS ADMINISTERED)
     Route: 065
     Dates: start: 20221117
  14. PACLITAXEL [Suspect]
     Active Substance: PACLITAXEL
     Dosage: UNK MG
     Route: 065
     Dates: start: 20221215
  15. DILAUDID [Concomitant]
     Active Substance: HYDROMORPHONE HYDROCHLORIDE
     Indication: Product used for unknown indication
     Dosage: UNK
     Route: 065
     Dates: start: 20220908
  16. CREON [Concomitant]
     Active Substance: PANCRELIPASE AMYLASE\PANCRELIPASE LIPASE\PANCRELIPASE PROTEASE
     Indication: Product used for unknown indication
     Dosage: UNK
     Route: 065
     Dates: start: 20220908
  17. COMPAZINE [Concomitant]
     Active Substance: PROCHLORPERAZINE MALEATE
     Indication: Product used for unknown indication
     Dosage: UNK
     Route: 065
     Dates: start: 20220908
  18. ZOFRAN [Concomitant]
     Active Substance: ONDANSETRON HYDROCHLORIDE
     Indication: Product used for unknown indication
     Dosage: UNK
     Route: 065
     Dates: start: 20220908
  19. NEUPOGEN [Concomitant]
     Active Substance: FILGRASTIM
     Indication: White blood cell count decreased
     Dosage: UNK
     Route: 065
  20. NEUPOGEN [Concomitant]
     Active Substance: FILGRASTIM
     Indication: Human rhinovirus test positive
  21. ULTRAM [Concomitant]
     Active Substance: TRAMADOL HYDROCHLORIDE
     Indication: Product used for unknown indication
     Dosage: UNK
     Route: 065
     Dates: start: 20220825
  22. PEPCID [Concomitant]
     Active Substance: FAMOTIDINE
     Indication: Product used for unknown indication
     Dosage: UNK
     Route: 065
     Dates: start: 20220627

REACTIONS (13)
  - Upper respiratory tract infection [Recovering/Resolving]
  - Pyrexia [Unknown]
  - Hypophagia [Unknown]
  - Cough [Not Recovered/Not Resolved]
  - Oropharyngeal pain [Unknown]
  - Nasal congestion [Unknown]
  - Vision blurred [Recovering/Resolving]
  - Neutropenia [Recovered/Resolved]
  - Pneumonia [Unknown]
  - Nausea [Recovered/Resolved]
  - Influenza [Unknown]
  - Human rhinovirus test positive [Unknown]
  - Oedema peripheral [Unknown]

NARRATIVE: CASE EVENT DATE: 20220922
